FAERS Safety Report 15268907 (Version 1)
Quarter: 2018Q3

REPORT INFORMATION
  Report Type: Spontaneous
  Country: US (occurrence: US)
  Receive Date: 20180813
  Receipt Date: 20180813
  Transmission Date: 20181010
  Serious: Yes (Other)
  Sender: FDA-Public Use
  Company Number: US-CIPLA LTD.-2018US20788

PATIENT

DRUGS (18)
  1. LITHIUM. [Suspect]
     Active Substance: LITHIUM
     Indication: EPILEPTIC ENCEPHALOPATHY
  2. IMMUNOGLOBULIN I.V [Suspect]
     Active Substance: HUMAN IMMUNOGLOBULIN G
     Indication: EPILEPTIC ENCEPHALOPATHY
  3. LAMOTRIGINE. [Suspect]
     Active Substance: LAMOTRIGINE
     Indication: EPILEPSY
     Dosage: UNK
     Route: 065
  4. LAMOTRIGINE. [Suspect]
     Active Substance: LAMOTRIGINE
     Indication: ABNORMAL BEHAVIOUR
  5. LITHIUM. [Suspect]
     Active Substance: LITHIUM
     Indication: CSWS SYNDROME
  6. DIAZEPAM. [Concomitant]
     Active Substance: DIAZEPAM
     Indication: CSWS SYNDROME
  7. LAMOTRIGINE. [Suspect]
     Active Substance: LAMOTRIGINE
     Indication: CSWS SYNDROME
  8. VALPROIC ACID. [Suspect]
     Active Substance: VALPROIC ACID
     Indication: ABNORMAL BEHAVIOUR
  9. CANNABIDIOL [Concomitant]
     Active Substance: CANNABIDIOL
     Indication: EPILEPTIC ENCEPHALOPATHY
     Dosage: UNK
     Route: 065
  10. CANNABIDIOL [Concomitant]
     Active Substance: CANNABIDIOL
     Indication: CSWS SYNDROME
  11. VALPROIC ACID. [Suspect]
     Active Substance: VALPROIC ACID
     Indication: EPILEPSY
     Dosage: UNK
     Route: 065
  12. DIAZEPAM. [Concomitant]
     Active Substance: DIAZEPAM
     Indication: EPILEPTIC ENCEPHALOPATHY
     Dosage: UNK
     Route: 065
  13. LAMOTRIGINE. [Suspect]
     Active Substance: LAMOTRIGINE
     Indication: EPILEPTIC ENCEPHALOPATHY
  14. VALPROIC ACID. [Suspect]
     Active Substance: VALPROIC ACID
     Indication: EPILEPTIC ENCEPHALOPATHY
  15. LITHIUM. [Suspect]
     Active Substance: LITHIUM
     Indication: EPILEPSY
     Dosage: UNK
     Route: 065
  16. IMMUNOGLOBULIN I.V [Suspect]
     Active Substance: HUMAN IMMUNOGLOBULIN G
     Indication: CSWS SYNDROME
     Dosage: UNK
     Route: 042
  17. VALPROIC ACID. [Suspect]
     Active Substance: VALPROIC ACID
     Indication: CSWS SYNDROME
  18. IMMUNOGLOBULIN I.V [Suspect]
     Active Substance: HUMAN IMMUNOGLOBULIN G
     Indication: EPILEPSY

REACTIONS (1)
  - Drug ineffective [Unknown]
